FAERS Safety Report 5828857-8 (Version None)
Quarter: 2008Q3

REPORT INFORMATION
  Report Type: 
  Country: None (occurrence: None)
  Receive Date: 20080731
  Receipt Date: 20080730
  Transmission Date: 20090109
  Serious: Yes (Hospitalization)
  Sender: FDA-Public Use
  Company Number: IT-BRISTOL-MYERS SQUIBB COMPANY-14281711

PATIENT
  Age: 85 Year
  Sex: Male

DRUGS (7)
  1. COUMADIN [Suspect]
     Indication: PROPHYLAXIS
     Dosage: INTERRUPTED ON 08JUL08
     Route: 048
     Dates: start: 20080611
  2. ASPIRIN [Suspect]
     Indication: PROPHYLAXIS
     Dosage: INTERRUPTED ON 08JUL08
     Route: 048
     Dates: start: 20080611
  3. IRBESARTAN [Concomitant]
     Indication: MYOCARDIAL ISCHAEMIA
     Route: 048
     Dates: start: 20070101, end: 20080708
  4. FUROSEMIDE [Concomitant]
     Indication: MYOCARDIAL ISCHAEMIA
     Route: 048
     Dates: start: 20070101, end: 20080708
  5. ENALAPRIL MALEATE [Concomitant]
     Indication: MYOCARDIAL ISCHAEMIA
     Route: 048
     Dates: start: 20070101, end: 20080708
  6. ALDACTONE [Concomitant]
     Indication: MYOCARDIAL ISCHAEMIA
     Dosage: 1 DOSAGE FORM = 25 MG TABLETS
     Route: 048
     Dates: start: 20070101, end: 20080708
  7. MINITRAN [Concomitant]
     Indication: MYOCARDIAL ISCHAEMIA
     Dosage: 1 DOSAGE FORM = 5MG/24H PATCH
     Route: 003
     Dates: start: 20070101, end: 20080708

REACTIONS (6)
  - ANAEMIA [None]
  - INTERNATIONAL NORMALISED RATIO INCREASED [None]
  - RENAL FAILURE ACUTE [None]
  - RETROPERITONEAL HAEMATOMA [None]
  - SUBCUTANEOUS HAEMATOMA [None]
  - SYNCOPE [None]
